FAERS Safety Report 7505209-6 (Version None)
Quarter: 2011Q2

REPORT INFORMATION
  Report Type: 
  Country: None (occurrence: None)
  Receive Date: 20110517
  Receipt Date: 20110511
  Transmission Date: 20111010
  Serious: Yes (Hospitalization, Disabling, Other)
  Sender: FDA-Public Use
  Company Number: 2010SP026335

PATIENT
  Age: 28 Year
  Sex: Female
  Weight: 62.5964 kg

DRUGS (2)
  1. NUVARING [Suspect]
     Indication: CONTRACEPTION
     Dates: start: 20091201, end: 20100219
  2. NUVARING [Suspect]
     Indication: CONTRACEPTION
     Dates: start: 20051201, end: 20060101

REACTIONS (13)
  - PREGNANCY [None]
  - GAIT DISTURBANCE [None]
  - BACK PAIN [None]
  - DRUG EXPOSURE DURING PREGNANCY [None]
  - CHLAMYDIAL INFECTION [None]
  - DEEP VEIN THROMBOSIS [None]
  - ABDOMINAL TENDERNESS [None]
  - OVARIAN CYST [None]
  - ABORTION INDUCED [None]
  - OEDEMA PERIPHERAL [None]
  - CERVICAL DYSPLASIA [None]
  - BLOOD GLUCOSE INCREASED [None]
  - VAGINAL DISCHARGE [None]
